FAERS Safety Report 6614603-7 (Version None)
Quarter: 2010Q1

REPORT INFORMATION
  Report Type: 
  Country: None (occurrence: None)
  Receive Date: 20100226
  Receipt Date: 20100208
  Transmission Date: 20100710
  Serious: Yes (Hospitalization)
  Sender: FDA-Public Use
  Company Number: AX236-10-0026

PATIENT
  Age: 69 Year
  Sex: Male
  Weight: 79.3795 kg

DRUGS (14)
  1. ABRAXANE [Suspect]
     Indication: HEAD AND NECK CANCER
     Dosage: (20 MG/M2)
     Dates: start: 20091124
  2. CISPLATIN [Suspect]
     Indication: HEAD AND NECK CANCER
     Dosage: (20 MG/M2
     Dates: start: 20091124
  3. ERBITUX [Suspect]
     Indication: HEAD AND NECK CANCER
     Dosage: (250 MG/M2)
     Dates: start: 20091117
  4. BENADRYL:MAALOX:LIDOCAINE [Concomitant]
  5. SODIUM CHLORIDE [Concomitant]
  6. MICONAZOLE [Concomitant]
  7. D5 NS (GLUCOSE) [Concomitant]
  8. CLINIMEX E [Concomitant]
  9. DOMEBORO SOLUTION (DOMEBORO) [Concomitant]
  10. DIPHENHYDRAMINE HCL [Concomitant]
  11. ACETAMINOPHEN [Concomitant]
  12. ZOFRAN [Concomitant]
  13. HYDROCODONE (HYDROCODONE) [Concomitant]
  14. BIOTENE (GLUCOSE OXIDASE) [Concomitant]

REACTIONS (26)
  - ALANINE AMINOTRANSFERASE INCREASED [None]
  - ASTHENIA [None]
  - BLOOD ALKALINE PHOSPHATASE INCREASED [None]
  - BLOOD CHLORIDE DECREASED [None]
  - CHROMATURIA [None]
  - DECREASED APPETITE [None]
  - DEHYDRATION [None]
  - DYSPHAGIA [None]
  - FATIGUE [None]
  - HYPOPHAGIA [None]
  - KETOSIS [None]
  - MALNUTRITION [None]
  - NAUSEA [None]
  - NEUTROPHIL COUNT DECREASED [None]
  - OESOPHAGEAL STENOSIS [None]
  - PHARYNGEAL INFLAMMATION [None]
  - PLATELET COUNT DECREASED [None]
  - PRESYNCOPE [None]
  - PYREXIA [None]
  - RADIATION INJURY [None]
  - RADIATION MUCOSITIS [None]
  - RASH [None]
  - STARVATION [None]
  - STOMATITIS [None]
  - URINE ODOUR ABNORMAL [None]
  - WHITE BLOOD CELL COUNT DECREASED [None]
